FAERS Safety Report 8277059-7 (Version None)
Quarter: 2012Q2

REPORT INFORMATION
  Report Type: 
  Country: None (occurrence: None)
  Receive Date: 20120412
  Receipt Date: 20120406
  Transmission Date: 20120825
  Serious: No
  Sender: FDA-Public Use
  Company Number: US-BAYER-2012-035139

PATIENT
  Age: 72 Year
  Sex: Female
  Weight: 71 kg

DRUGS (6)
  1. ALEVE (CAPLET) [Suspect]
     Indication: BACK PAIN
     Dosage: 1 U, PRN
     Route: 048
     Dates: start: 20110601, end: 20110601
  2. BENAZEPRIL HYDROCHLORIDE [Concomitant]
  3. CENTRUM [Concomitant]
  4. PRAVASTATIN [Concomitant]
  5. OSTEO BI-FLEX [Concomitant]
  6. ASPIRIN [Concomitant]
     Route: 048

REACTIONS (1)
  - BACK PAIN [None]
